FAERS Safety Report 5014320-3 (Version None)
Quarter: 2006Q2

REPORT INFORMATION
  Report Type: 
  Country: None (occurrence: None)
  Receive Date: 20060414
  Receipt Date: 20060217
  Transmission Date: 20061013
  Serious: No
  Sender: FDA-Public Use
  Company Number: 2005SP003925

PATIENT
  Age: 49 Year
  Sex: Female
  Weight: 61.2356 kg

DRUGS (7)
  1. LUNESTA [Suspect]
     Indication: INSOMNIA
     Dosage: 3 MG;HS;ORAL
     Route: 048
     Dates: start: 20051108, end: 20051110
  2. HYDROCODONE [Concomitant]
  3. FLEXERIL [Concomitant]
  4. VITAREL [Concomitant]
  5. XANAX [Concomitant]
  6. TRAMADOL HCL [Concomitant]
  7. VITAMINS [Concomitant]

REACTIONS (1)
  - DYSGEUSIA [None]
